FAERS Safety Report 16239942 (Version 1)
Quarter: 2019Q2

REPORT INFORMATION
  Report Type: Spontaneous
  Country: US (occurrence: US)
  Receive Date: 20190425
  Receipt Date: 20190425
  Transmission Date: 20190711
  Serious: No
  Sender: FDA-Public Use
  Company Number: US-BAYER-2019-083990

PATIENT
  Sex: Male

DRUGS (6)
  1. CLARITIN [Suspect]
     Active Substance: LORATADINE
     Indication: NASOPHARYNGITIS
  2. CLARITIN [Suspect]
     Active Substance: LORATADINE
     Indication: PRURITUS
  3. CLARITIN [Suspect]
     Active Substance: LORATADINE
     Indication: THROAT IRRITATION
  4. CLARITIN [Suspect]
     Active Substance: LORATADINE
     Indication: HYPERSENSITIVITY
     Route: 048
  5. CLARITIN [Suspect]
     Active Substance: LORATADINE
     Indication: NASAL PRURITUS
  6. CLARITIN [Suspect]
     Active Substance: LORATADINE
     Indication: EYE PRURITUS

REACTIONS (1)
  - Therapeutic product effect incomplete [Unknown]
